FAERS Safety Report 22609941 (Version 2)
Quarter: 2023Q2

REPORT INFORMATION
  Report Type: Spontaneous
  Country: PL (occurrence: PL)
  Receive Date: 20230616
  Receipt Date: 20230616
  Transmission Date: 20230721
  Serious: Yes (Other)
  Sender: FDA-Public Use
  Company Number: PL-ABBVIE-5291451

PATIENT
  Age: 65 Year
  Sex: Male

DRUGS (7)
  1. VENETOCLAX [Suspect]
     Active Substance: VENETOCLAX
     Indication: Chronic lymphocytic leukaemia
     Dosage: 50 MILLIGRAM
  2. VENETOCLAX [Suspect]
     Active Substance: VENETOCLAX
     Indication: Chronic lymphocytic leukaemia
     Dosage: 20 MILLIGRAM
     Dates: start: 202305
  3. ALLOPURINOL [Concomitant]
     Active Substance: ALLOPURINOL
     Indication: Prophylaxis
     Dates: start: 202305
  4. IBRUTINIB [Suspect]
     Active Substance: IBRUTINIB
     Indication: Chronic lymphocytic leukaemia
     Dosage: 300 MILLIGRAM
     Dates: start: 2023
  5. IBRUTINIB [Suspect]
     Active Substance: IBRUTINIB
     Indication: Chronic lymphocytic leukaemia
     Dates: start: 202103
  6. RITUXIMAB [Concomitant]
     Active Substance: RITUXIMAB
     Indication: Chronic lymphocytic leukaemia
     Dosage: DURATION TEXT: 6 CYCLES
     Dates: start: 2015, end: 2016
  7. RITUXIMAB [Concomitant]
     Active Substance: RITUXIMAB
     Indication: Chronic lymphocytic leukaemia
     Dates: start: 202305

REACTIONS (18)
  - Tachycardia [Recovering/Resolving]
  - Stupor [Recovering/Resolving]
  - Richter^s syndrome [Recovering/Resolving]
  - Dehydration [Recovering/Resolving]
  - Blood lactate dehydrogenase increased [Recovering/Resolving]
  - Somnolence [Recovering/Resolving]
  - Lymphadenopathy [Unknown]
  - Blood bilirubin increased [Recovering/Resolving]
  - Fluid intake reduced [Recovering/Resolving]
  - Nausea [Recovering/Resolving]
  - Blood creatinine increased [Recovering/Resolving]
  - Respiratory rate increased [Recovering/Resolving]
  - Infection [Recovering/Resolving]
  - Body temperature increased [Recovering/Resolving]
  - C-reactive protein increased [Recovering/Resolving]
  - Chronic lymphocytic leukaemia [Recovering/Resolving]
  - Adverse food reaction [Recovering/Resolving]
  - Dyspnoea [Recovering/Resolving]

NARRATIVE: CASE EVENT DATE: 20230501
